FAERS Safety Report 6377436-5 (Version None)
Quarter: 2009Q3

REPORT INFORMATION
  Report Type: 
  Country: None (occurrence: None)
  Receive Date: 20090921
  Receipt Date: 20090916
  Transmission Date: 20100115
  Serious: Yes (Other)
  Sender: FDA-Public Use
  Company Number: 2009SP025759

PATIENT
  Age: 9 Year
  Sex: Male

DRUGS (4)
  1. CLARITIN [Suspect]
     Indication: RHINITIS ALLERGIC
     Dosage: 10 MG; PO
     Route: 048
     Dates: start: 20090723, end: 20090810
  2. TEGRETOL [Concomitant]
  3. RISPERDAL [Concomitant]
  4. MUCODYNE [Concomitant]

REACTIONS (1)
  - EPILEPSY [None]
